FAERS Safety Report 10061221 (Version 1)
Quarter: 2014Q2

REPORT INFORMATION
  Report Type: Spontaneous
  Country: PL (occurrence: PL)
  Receive Date: 20140407
  Receipt Date: 20140407
  Transmission Date: 20141212
  Serious: Yes (Death, Other)
  Sender: FDA-Public Use
  Company Number: PHHY2014PL037656

PATIENT
  Age: 9 Year
  Sex: Male
  Weight: 45 kg

DRUGS (7)
  1. METHOTREXATE [Suspect]
     Indication: METASTASES TO LUNG
     Dosage: 11.42 G/M2
     Route: 042
  2. CARBOPLATIN [Suspect]
     Indication: METASTASES TO LUNG
  3. ETOPOSIDE [Suspect]
     Indication: METASTASES TO LUNG
  4. VINCRISTINE [Suspect]
     Indication: CHEMOTHERAPY
  5. DACARBAZINE [Suspect]
     Indication: CHEMOTHERAPY
  6. DOXORUBICIN [Suspect]
     Indication: CHEMOTHERAPY
  7. CYCLOPHOSPHAMIDE [Suspect]
     Indication: CHEMOTHERAPY

REACTIONS (4)
  - Osteosarcoma [Fatal]
  - Disease progression [Fatal]
  - Renal impairment [Recovered/Resolved]
  - Toxicity to various agents [Recovered/Resolved]
